FAERS Safety Report 7444289-3 (Version None)
Quarter: 2011Q2

REPORT INFORMATION
  Report Type: 
  Country: None (occurrence: None)
  Receive Date: 20110419
  Receipt Date: 20110411
  Transmission Date: 20111010
  Serious: Yes (Death)
  Sender: FDA-Public Use
  Company Number: DKLU1069675

PATIENT
  Age: 10 Year
  Sex: Female

DRUGS (1)
  1. SABRIL [Suspect]
     Indication: CONVULSION
     Dosage: 500 MG MILLIGRAM(S), 3 IN 1 D, ORAL
     Route: 048
     Dates: start: 20100101

REACTIONS (1)
  - CANAVAN DISEASE [None]
